FAERS Safety Report 14670406 (Version 1)
Quarter: 2018Q1

REPORT INFORMATION
  Report Type: Spontaneous
  Country: CA (occurrence: CA)
  Receive Date: 20180322
  Receipt Date: 20180322
  Transmission Date: 20180509
  Serious: Yes (Disabling)
  Sender: FDA-Public Use
  Company Number: CA-BAYER-2018-051723

PATIENT
  Age: 48 Year
  Sex: Female
  Weight: 46.26 kg

DRUGS (4)
  1. MIRENA [Suspect]
     Active Substance: LEVONORGESTREL
     Indication: CONTRACEPTION
  2. MIRENA [Suspect]
     Active Substance: LEVONORGESTREL
     Indication: MENORRHAGIA
  3. MIRENA [Suspect]
     Active Substance: LEVONORGESTREL
     Indication: MENORRHAGIA
     Dosage: 20 MCG/24HR, CONT
     Route: 015
  4. MIRENA [Suspect]
     Active Substance: LEVONORGESTREL
     Indication: CONTRACEPTION

REACTIONS (9)
  - Insomnia [Unknown]
  - Loss of libido [Unknown]
  - Depressed mood [Unknown]
  - Negative thoughts [Unknown]
  - Night sweats [Unknown]
  - Depression [Unknown]
  - Dyspareunia [Unknown]
  - Abdominal pain [Unknown]
  - Irritability [Unknown]
